FAERS Safety Report 17601726 (Version 1)
Quarter: 2020Q1

REPORT INFORMATION
  Report Type: Other
  Country: CA (occurrence: CA)
  Receive Date: 20200330
  Receipt Date: 20200330
  Transmission Date: 20200409
  Serious: Yes (Hospitalization)
  Sender: FDA-Public Use
  Company Number: CA-TITAN PHARMACEUTICALS-2020TAN00008

PATIENT
  Sex: Female

DRUGS (6)
  1. ARIPIPRAZOLE. [Suspect]
     Active Substance: ARIPIPRAZOLE
  2. BUPRENORPHINE. [Suspect]
     Active Substance: BUPRENORPHINE
  3. VYVANSE [Suspect]
     Active Substance: LISDEXAMFETAMINE DIMESYLATE
  4. DIAZEPAM. [Suspect]
     Active Substance: DIAZEPAM
  5. NALOXONE [Suspect]
     Active Substance: NALOXONE
  6. NICOTINE. [Suspect]
     Active Substance: NICOTINE

REACTIONS (2)
  - Premature delivery [Unknown]
  - Maternal exposure during pregnancy [Unknown]
